FAERS Safety Report 11999312 (Version 1)
Quarter: 2016Q1

REPORT INFORMATION
  Report Type: Spontaneous
  Country: IN (occurrence: IN)
  Receive Date: 20160204
  Receipt Date: 20160204
  Transmission Date: 20160526
  Serious: Yes (Hospitalization, Other)
  Sender: FDA-Public Use
  Company Number: IN-CIPLA LTD.-2016IN00880

PATIENT

DRUGS (2)
  1. GEMCITABINE [Suspect]
     Active Substance: GEMCITABINE\GEMCITABINE HYDROCHLORIDE
     Indication: GALLBLADDER CANCER
     Dosage: 1.2 G/M2, DAYS 1 AND 8; ONCE IN 3 WEEKS
     Route: 065
     Dates: start: 201202, end: 201204
  2. CISPLATIN. [Suspect]
     Active Substance: CISPLATIN
     Indication: GALLBLADDER CANCER
     Dosage: DIVIDED OVER DAYS 1 AND 2; ONCE IN 3 WEEKS
     Route: 065
     Dates: start: 201202, end: 201204

REACTIONS (12)
  - Neutropenia [Unknown]
  - Headache [Unknown]
  - Asthenia [Unknown]
  - Metastases to meninges [Unknown]
  - Altered state of consciousness [Unknown]
  - Back pain [Unknown]
  - Neutrophilia [Unknown]
  - Seizure [Unknown]
  - Meningitis bacterial [Unknown]
  - Abdominal discomfort [Unknown]
  - Thrombocytopenia [Unknown]
  - Anaemia [Unknown]
